FAERS Safety Report 5492861-2 (Version None)
Quarter: 2007Q4

REPORT INFORMATION
  Report Type: 
  Country: None (occurrence: None)
  Receive Date: 20071023
  Receipt Date: 20070418
  Transmission Date: 20080405
  Serious: No
  Sender: FDA-Public Use
  Company Number: US-BRISTOL-MYERS SQUIBB COMPANY-13751888

PATIENT
  Age: 79 Year
  Sex: Female
  Weight: 50 kg

DRUGS (2)
  1. BUSPIRONE HCL [Suspect]
     Route: 048
  2. BENADRYL [Suspect]
     Indication: INSOMNIA
     Route: 048
     Dates: start: 20040101

REACTIONS (1)
  - SOMNOLENCE [None]
